FAERS Safety Report 7931074-9 (Version None)
Quarter: 2011Q4

REPORT INFORMATION
  Report Type: 
  Country: None (occurrence: None)
  Receive Date: 20111121
  Receipt Date: 20111108
  Transmission Date: 20120403
  Serious: Yes (Other)
  Sender: FDA-Public Use
  Company Number: BR-ROCHE-1013615

PATIENT
  Sex: Female
  Weight: 79 kg

DRUGS (6)
  1. XOLAIR [Suspect]
     Indication: ASTHMA
     Route: 058
  2. CELESTAMINE TAB [Concomitant]
  3. XOLAIR [Suspect]
     Dates: start: 20110801
  4. COMBIVENT [Concomitant]
  5. XOLAIR [Suspect]
     Dates: start: 20111103
  6. FORASEQ (BRAZIL) [Concomitant]
     Dosage: 12/400 UG

REACTIONS (11)
  - DIARRHOEA [None]
  - ASTHMA [None]
  - HYPERSENSITIVITY [None]
  - WHEEZING [None]
  - PYREXIA [None]
  - PAIN [None]
  - BRONCHITIS [None]
  - DYSPNOEA [None]
  - INFLUENZA [None]
  - MALAISE [None]
  - HEADACHE [None]
